FAERS Safety Report 20138628 (Version 1)
Quarter: 2021Q4

REPORT INFORMATION
  Report Type: Spontaneous
  Country: US (occurrence: US)
  Receive Date: 20211202
  Receipt Date: 20211202
  Transmission Date: 20220303
  Serious: No
  Sender: FDA-Public Use
  Company Number: US-JNJFOC-20211156706

PATIENT
  Age: 48 Year
  Sex: Female
  Weight: 68.04 kg

DRUGS (4)
  1. IBUPROFEN [Suspect]
     Active Substance: IBUPROFEN
     Indication: Pain in extremity
     Route: 065
     Dates: start: 2021
  2. COVID-19 VACCINE [Concomitant]
     Indication: Immunisation
     Dosage: BOOSTER
     Route: 065
     Dates: start: 20211025
  3. COVID-19 VACCINE [Concomitant]
     Dosage: 2ND DOSE.
     Route: 065
     Dates: start: 20210318
  4. COVID-19 VACCINE [Concomitant]
     Dosage: 1ST DOSE.
     Route: 065
     Dates: start: 2021

REACTIONS (2)
  - Product use in unapproved indication [Unknown]
  - Off label use [Unknown]

NARRATIVE: CASE EVENT DATE: 20210101
